FAERS Safety Report 7183399-5 (Version None)
Quarter: 2010Q4

REPORT INFORMATION
  Report Type: 
  Country: None (occurrence: None)
  Receive Date: 20101222
  Receipt Date: 20101215
  Transmission Date: 20110411
  Serious: Yes (Other)
  Sender: FDA-Public Use
  Company Number: JP-MPIJNJ-2010-06107

PATIENT

DRUGS (5)
  1. VELCADE [Suspect]
     Indication: PRODUCT USED FOR UNKNOWN INDICATION
     Dosage: UNK
     Route: 042
     Dates: start: 20101126
  2. VELCADE [Suspect]
     Dosage: UNK
     Route: 042
     Dates: start: 20101210
  3. DECADRON [Suspect]
     Dosage: UNK
     Route: 065
     Dates: start: 20101126
  4. DECADRON [Suspect]
     Dosage: UNK
     Route: 065
     Dates: start: 20101210
  5. VALTREX [Concomitant]
     Dosage: UNK
     Route: 048
     Dates: start: 20101129

REACTIONS (1)
  - DELIRIUM [None]
